FAERS Safety Report 6900397-4 (Version None)
Quarter: 2010Q3

REPORT INFORMATION
  Report Type: 
  Country: None (occurrence: None)
  Receive Date: 20100803
  Receipt Date: 20100727
  Transmission Date: 20110219
  Serious: Yes (Hospitalization)
  Sender: FDA-Public Use
  Company Number: PHHO2010DE09886

PATIENT
  Sex: Female

DRUGS (2)
  1. SIMULECT [Suspect]
     Indication: LIVER TRANSPLANT
  2. NO TREATMENT RECEIVED NOMED [Suspect]

REACTIONS (3)
  - GASTROENTERITIS [None]
  - INCISIONAL HERNIA [None]
  - INCISIONAL HERNIA REPAIR [None]
